FAERS Safety Report 6580027-4 (Version None)
Quarter: 2010Q1

REPORT INFORMATION
  Report Type: 
  Country: None (occurrence: None)
  Receive Date: 20100212
  Receipt Date: 20100203
  Transmission Date: 20100710
  Serious: Yes (Death, Hospitalization, Disabling, Other)
  Sender: FDA-Public Use
  Company Number: US-MERCK-0708USA00616

PATIENT
  Age: 59 Year
  Sex: Female

DRUGS (2)
  1. FOSAMAX [Suspect]
     Indication: OSTEOPOROSIS
     Route: 048
     Dates: start: 20020101, end: 20030101
  2. ZOMETA [Suspect]
     Route: 042
     Dates: start: 20040201, end: 20050101

REACTIONS (58)
  - ADVERSE DRUG REACTION [None]
  - ANAEMIA [None]
  - ANAEMIA OF CHRONIC DISEASE [None]
  - ANXIETY [None]
  - ARTERIOSCLEROSIS CORONARY ARTERY [None]
  - ASTHENIA [None]
  - AZOTAEMIA [None]
  - BACK PAIN [None]
  - BONE DENSITY DECREASED [None]
  - BONE NEOPLASM [None]
  - BREAST CANCER METASTATIC [None]
  - BREAST CANCER RECURRENT [None]
  - BREAST DISORDER [None]
  - CELLULITIS [None]
  - COAGULOPATHY [None]
  - CONFUSIONAL STATE [None]
  - DEEP VEIN THROMBOSIS [None]
  - DEHYDRATION [None]
  - DEVICE RELATED SEPSIS [None]
  - DYSGEUSIA [None]
  - FEMORAL NECK FRACTURE [None]
  - HYPERCALCAEMIA [None]
  - HYPERKERATOSIS [None]
  - HYPERTENSION [None]
  - HYPOAESTHESIA [None]
  - HYPOKALAEMIA [None]
  - INJECTION SITE PAIN [None]
  - IRON DEFICIENCY [None]
  - JAW FRACTURE [None]
  - JOINT SWELLING [None]
  - KYPHOSCOLIOSIS [None]
  - LETHARGY [None]
  - MALAISE [None]
  - MASTICATION DISORDER [None]
  - MENTAL STATUS CHANGES [None]
  - METASTASES TO BREAST [None]
  - METASTASES TO SPINE [None]
  - NEOPLASM MALIGNANT [None]
  - NERVE COMPRESSION [None]
  - OEDEMA [None]
  - OSTEITIS [None]
  - OSTEONECROSIS [None]
  - OSTEOPENIA [None]
  - OSTEORADIONECROSIS [None]
  - OVERDOSE [None]
  - PAIN [None]
  - POSTNASAL DRIP [None]
  - RENAL FAILURE [None]
  - SCIATICA [None]
  - SEPSIS [None]
  - SPINAL COMPRESSION FRACTURE [None]
  - SPINAL OSTEOARTHRITIS [None]
  - SPONDYLITIS [None]
  - THROMBOCYTOPENIA [None]
  - TOOTH DISORDER [None]
  - TUBERCULOSIS [None]
  - UPPER LIMB FRACTURE [None]
  - WOUND DEHISCENCE [None]
